FAERS Safety Report 5442457-3 (Version None)
Quarter: 2007Q3

REPORT INFORMATION
  Report Type: 
  Country: None (occurrence: None)
  Receive Date: 20070904
  Receipt Date: 20070828
  Transmission Date: 20080115
  Serious: Yes (Death)
  Sender: FDA-Public Use
  Company Number: KR-GENENTECH-246834

PATIENT
  Sex: Female

DRUGS (3)
  1. ACTIVASE [Suspect]
     Indication: ISCHAEMIC STROKE
     Dosage: 5 MG, UNK
     Route: 042
     Dates: start: 20070812, end: 20070812
  2. ACTIVASE [Suspect]
     Dosage: 50 MG, UNK
     Route: 042
     Dates: start: 20070812, end: 20070812
  3. ABBOKINASE [Concomitant]
     Indication: ISCHAEMIC STROKE
     Dosage: 20 UNIT, UNK
     Route: 013
     Dates: start: 20070812, end: 20070812

REACTIONS (2)
  - CEREBRAL HAEMORRHAGE [None]
  - DEATH [None]
